FAERS Safety Report 24085627 (Version 1)
Quarter: 2024Q3

REPORT INFORMATION
  Report Type: Spontaneous
  Country: JP (occurrence: JP)
  Receive Date: 20240712
  Receipt Date: 20240712
  Transmission Date: 20241017
  Serious: Yes (Disabling)
  Sender: EISAI
  Company Number: JP-Eisai-EC-2024-169541

PATIENT
  Age: 80 Year
  Sex: Male

DRUGS (1)
  1. ARICEPT [Suspect]
     Active Substance: DONEPEZIL HYDROCHLORIDE
     Indication: Product used for unknown indication
     Route: 048
     Dates: start: 202206, end: 202212

REACTIONS (3)
  - Duodenal ulcer haemorrhage [Recovered/Resolved with Sequelae]
  - Cerebral infarction [Recovered/Resolved with Sequelae]
  - Physical disability [Recovered/Resolved with Sequelae]

NARRATIVE: CASE EVENT DATE: 20220101
